FAERS Safety Report 9130772 (Version 2)
Quarter: 2013Q1

REPORT INFORMATION
  Report Type: Spontaneous
  Country: PH (occurrence: PH)
  Receive Date: 20130301
  Receipt Date: 20130305
  Transmission Date: 20140127
  Serious: Yes (Other)
  Sender: FDA-Public Use
  Company Number: PHHY2013PH019809

PATIENT
  Age: 55 Year
  Sex: Female
  Weight: 71 kg

DRUGS (1)
  1. ACLASTA [Suspect]
     Indication: OSTEOPOROSIS
     Dosage: ANNUALLY
     Route: 042
     Dates: start: 20130227

REACTIONS (2)
  - Asthma [Recovered/Resolved]
  - Pain [Recovered/Resolved]
